FAERS Safety Report 10085476 (Version 2)
Quarter: 2014Q2

REPORT INFORMATION
  Report Type: Spontaneous
  Country: US (occurrence: US)
  Receive Date: 20140418
  Receipt Date: 20140516
  Transmission Date: 20141212
  Serious: Yes (Hospitalization, Other)
  Sender: FDA-Public Use
  Company Number: US-009507513-1404USA010271

PATIENT
  Age: 52 Year
  Sex: Female
  Weight: 72.11 kg

DRUGS (7)
  1. JANUVIA [Suspect]
     Indication: TYPE 2 DIABETES MELLITUS
     Dosage: 100MG DAILY, TOTAL DAILY DOSE: 100MG
     Route: 048
     Dates: start: 201202, end: 201202
  2. SINGULAIR [Concomitant]
     Dosage: 10 MG DAILY
     Route: 048
  3. METFORMIN [Concomitant]
     Dosage: 850 MG, TID
  4. CELEXA [Concomitant]
     Dosage: 20MG DAILY
  5. AMARYL [Concomitant]
     Dosage: 4 MG, BID
  6. SYNTHROID [Concomitant]
     Dosage: 0.125MG DAILY
  7. PREMARIN [Concomitant]
     Dosage: 0.625MG DAILY

REACTIONS (1)
  - Pancreatitis [Recovered/Resolved]
